FAERS Safety Report 12869361 (Version 1)
Quarter: 2016Q4

REPORT INFORMATION
  Report Type: Spontaneous
  Country: GB (occurrence: GB)
  Receive Date: 20161021
  Receipt Date: 20161021
  Transmission Date: 20170207
  Serious: Yes (Other)
  Sender: FDA-Public Use
  Company Number: ALCN2016GB007028

PATIENT
  Age: 77 Year
  Sex: Female
  Weight: 56.24 kg

DRUGS (1)
  1. MAXITROL [Suspect]
     Active Substance: DEXAMETHASONE\NEOMYCIN SULFATE\POLYMYXIN B SULFATE
     Indication: POSTERIOR CAPSULE OPACIFICATION
     Dosage: 5 MG, QID
     Route: 047
     Dates: start: 20160928, end: 20161002

REACTIONS (1)
  - Visual impairment [Not Recovered/Not Resolved]

NARRATIVE: CASE EVENT DATE: 20160928
